FAERS Safety Report 8107244-6 (Version None)
Quarter: 2011Q4

REPORT INFORMATION
  Report Type: 
  Country: None (occurrence: None)
  Receive Date: 20111227
  Receipt Date: 20111101
  Transmission Date: 20120403
  Serious: Yes (Other)
  Sender: FDA-Public Use
  Company Number: PHEH2011US05237

PATIENT
  Age: 41 Year
  Sex: Female

DRUGS (5)
  1. GILENYA [Suspect]
     Indication: MULTIPLE SCLEROSIS
     Dosage: 0.5 MG, DAILY, ORAL, 0.5 MG, DAILY, ORAL
     Route: 048
     Dates: start: 20110407, end: 20110830
  2. GILENYA [Suspect]
     Indication: MULTIPLE SCLEROSIS
     Dosage: 0.5 MG, DAILY, ORAL, 0.5 MG, DAILY, ORAL
     Route: 048
     Dates: start: 20110927
  3. ZOVIRAX [Concomitant]
  4. COZAAR [Concomitant]
  5. VITAMIN D [Concomitant]

REACTIONS (6)
  - LYMPHOCYTE COUNT DECREASED [None]
  - ANXIETY [None]
  - HYPOAESTHESIA [None]
  - HERPES ZOSTER [None]
  - RASH [None]
  - PAIN [None]
